FAERS Safety Report 7931564-9 (Version None)
Quarter: 2011Q4

REPORT INFORMATION
  Report Type: 
  Country: None (occurrence: None)
  Receive Date: 20111121
  Receipt Date: 20111121
  Transmission Date: 20120403
  Serious: Yes (Life-Threatening, Hospitalization)
  Sender: FDA-Public Use
  Company Number: None

PATIENT
  Age: 55 Year
  Sex: Male
  Weight: 75.749 kg

DRUGS (1)
  1. CELLCEPT [Suspect]
     Indication: RENAL TRANSPLANT
     Route: 048
     Dates: start: 20100401, end: 20100831

REACTIONS (7)
  - DIARRHOEA [None]
  - ABDOMINAL PAIN UPPER [None]
  - QUALITY OF LIFE DECREASED [None]
  - ECONOMIC PROBLEM [None]
  - CROHN'S DISEASE [None]
  - EMOTIONAL DISORDER [None]
  - ASTHENIA [None]
